FAERS Safety Report 5879309-0 (Version None)
Quarter: 2008Q3

REPORT INFORMATION
  Report Type: 
  Country: None (occurrence: None)
  Receive Date: 20080910
  Receipt Date: 20080910
  Transmission Date: 20090109
  Serious: Yes (Other)
  Sender: FDA-Public Use
  Company Number: None

PATIENT
  Sex: Female
  Weight: 74.8435 kg

DRUGS (2)
  1. AMBIEN CR [Suspect]
     Indication: INSOMNIA
     Dates: start: 20070301, end: 20071121
  2. AMBIEN CR [Suspect]
     Indication: SOMNOLENCE
     Dates: start: 20070301, end: 20071121

REACTIONS (6)
  - ABNORMAL BEHAVIOUR [None]
  - AMNESIA [None]
  - DRUG ADMINISTRATION ERROR [None]
  - SLEEP TALKING [None]
  - SOMNAMBULISM [None]
  - SOMNOLENCE [None]
